FAERS Safety Report 25374594 (Version 1)
Quarter: 2025Q2

REPORT INFORMATION
  Report Type: Spontaneous
  Country: US (occurrence: US)
  Receive Date: 20250529
  Receipt Date: 20250529
  Transmission Date: 20250716
  Serious: Yes (Other)
  Sender: AMGEN
  Company Number: US-AMGEN-USASP2025100529

PATIENT
  Age: 78 Year
  Sex: Female

DRUGS (3)
  1. NEULASTA [Suspect]
     Active Substance: PEGFILGRASTIM
     Indication: Prophylaxis
     Route: 065
     Dates: start: 2014
  2. NEUPOGEN [Suspect]
     Active Substance: FILGRASTIM
     Indication: Product used for unknown indication
     Route: 065
     Dates: start: 2014
  3. VERZENIO [Concomitant]
     Active Substance: ABEMACICLIB
     Indication: Hormone therapy
     Dosage: UNK, BID
     Route: 065
     Dates: start: 202505

REACTIONS (13)
  - Recurrent cancer [Unknown]
  - Pneumonia bacterial [Unknown]
  - Syncope [Unknown]
  - Infection [Unknown]
  - Lymphadenopathy [Unknown]
  - Gastrointestinal disorder [Unknown]
  - COVID-19 [Unknown]
  - Red blood cell count decreased [Not Recovered/Not Resolved]
  - Alopecia [Unknown]
  - Fatigue [Unknown]
  - Fall [Unknown]
  - Blood oestrogen increased [Unknown]
  - Mobility decreased [Unknown]

NARRATIVE: CASE EVENT DATE: 20240101
